FAERS Safety Report 6101133-4 (Version None)
Quarter: 2009Q1

REPORT INFORMATION
  Report Type: 
  Country: None (occurrence: None)
  Receive Date: 20090304
  Receipt Date: 20090223
  Transmission Date: 20090719
  Serious: Yes (Other)
  Sender: FDA-Public Use
  Company Number: US-AMGEN-QUU333523

PATIENT
  Sex: Female
  Weight: 57.2 kg

DRUGS (12)
  1. NEULASTA [Suspect]
     Indication: CHEMOTHERAPY
     Route: 058
     Dates: start: 20081209
  2. ATENOLOL [Concomitant]
  3. TRIAMTERENE [Concomitant]
  4. MINOXIDIL [Concomitant]
  5. CARBOPLATIN [Concomitant]
     Dates: start: 20081209
  6. TAXOTERE [Concomitant]
     Dates: start: 20081209
  7. XALATAN [Concomitant]
  8. LIPITOR [Concomitant]
  9. BELLADONNA EXTRACT [Concomitant]
  10. HYDROCHLOROTHIAZIDE [Concomitant]
  11. ASPIRIN [Concomitant]
  12. TAXOL [Concomitant]
     Route: 042
     Dates: start: 20081118

REACTIONS (3)
  - DYSPNOEA [None]
  - HEART RATE INCREASED [None]
  - WHITE BLOOD CELL COUNT INCREASED [None]
